FAERS Safety Report 8002734-9 (Version None)
Quarter: 2011Q4

REPORT INFORMATION
  Report Type: 
  Country: None (occurrence: None)
  Receive Date: 20111222
  Receipt Date: 20111028
  Transmission Date: 20120403
  Serious: Yes (Other)
  Sender: FDA-Public Use
  Company Number: US-PURDUE-USA-2011-0079861

PATIENT

DRUGS (10)
  1. DULCOLAX [Concomitant]
  2. COREG [Concomitant]
  3. LISINOPRIL [Concomitant]
  4. SENNA                              /00142201/ [Concomitant]
  5. MEPERIDINE HCL [Concomitant]
  6. NORCO [Concomitant]
  7. OXYCONTIN [Suspect]
     Indication: HIP ARTHROPLASTY
     Dosage: UNK
     Dates: start: 20000101
  8. DEMEROL APAP [Concomitant]
  9. LASIX [Concomitant]
  10. XANAX [Concomitant]

REACTIONS (2)
  - SUICIDE ATTEMPT [None]
  - DRUG DEPENDENCE [None]
